FAERS Safety Report 5702363-3 (Version None)
Quarter: 2008Q2

REPORT INFORMATION
  Report Type: 
  Country: None (occurrence: None)
  Receive Date: 20080411
  Receipt Date: 20080331
  Transmission Date: 20081010
  Serious: Yes (Life-Threatening, Hospitalization)
  Sender: FDA-Public Use
  Company Number: ES-AMGEN-UK272808

PATIENT
  Age: 39 Year
  Sex: Male

DRUGS (6)
  1. NEULASTA [Suspect]
     Indication: CHEMOTHERAPY
     Route: 058
     Dates: start: 20071112, end: 20080129
  2. MABTHERA [Suspect]
     Route: 065
     Dates: start: 20071112, end: 20080124
  3. DOXORUBICIN HCL [Suspect]
     Route: 065
     Dates: start: 20071128, end: 20080124
  4. PREDNISONE [Suspect]
     Route: 065
     Dates: start: 20071128, end: 20080124
  5. CYCLOPHOSPHAMIDE [Suspect]
     Route: 065
     Dates: start: 20071128, end: 20080124
  6. VINCRISTINE [Suspect]
     Route: 065
     Dates: start: 20071128, end: 20080124

REACTIONS (1)
  - ACUTE INTERSTITIAL PNEUMONITIS [None]
